FAERS Safety Report 12313736 (Version 1)
Quarter: 2016Q2

REPORT INFORMATION
  Report Type: Spontaneous
  Country: US (occurrence: US)
  Receive Date: 20160428
  Receipt Date: 20160428
  Transmission Date: 20160815
  Serious: Yes (Other)
  Sender: FDA-Public Use
  Company Number: US-TEVA-654838USA

PATIENT
  Age: 41 Year
  Sex: Female

DRUGS (1)
  1. COPAXONE [Suspect]
     Active Substance: GLATIRAMER ACETATE
     Indication: MULTIPLE SCLEROSIS
     Route: 058
     Dates: start: 20151210

REACTIONS (6)
  - Injection site pruritus [Unknown]
  - Throat tightness [Unknown]
  - Injection site bruising [Unknown]
  - Injection site erythema [Unknown]
  - Dyspnoea [Unknown]
  - Influenza like illness [Unknown]

NARRATIVE: CASE EVENT DATE: 201604
